FAERS Safety Report 9940630 (Version 2)
Quarter: 2014Q2

REPORT INFORMATION
  Report Type: Spontaneous
  Country: DE (occurrence: DE)
  Receive Date: 20140303
  Receipt Date: 20140422
  Transmission Date: 20141212
  Serious: Yes (Hospitalization, Other)
  Sender: FDA-Public Use
  Company Number: PHHY2014DE025073

PATIENT
  Sex: Female
  Weight: 60 kg

DRUGS (6)
  1. ZOMETA [Suspect]
     Indication: METASTASES TO SPINE
     Dosage: 4 MG PER 100ML,EVERY 3 WEEKS
     Dates: start: 200511
  2. ZOMETA [Suspect]
     Dosage: UNK UKN, UNK
  3. AROMASIN [Concomitant]
     Dosage: UNK UKN, UNK
  4. VOLTAREN [Concomitant]
     Indication: INJURY
     Dosage: UNK UKN, UNK
  5. NOVALGINE [Concomitant]
     Indication: INJURY
     Dosage: UNK UKN, UNK
  6. PARACETAMOL COMPOUND [Concomitant]
     Dosage: UNK UKN, UNK

REACTIONS (2)
  - Osteonecrosis of jaw [Not Recovered/Not Resolved]
  - Tooth abscess [Unknown]
